FAERS Safety Report 23982628 (Version 1)
Quarter: 2024Q2

REPORT INFORMATION
  Report Type: Report from Study
  Country: US (occurrence: None)
  Receive Date: 20240617
  Receipt Date: 20240617
  Transmission Date: 20240715
  Serious: Yes (Life-Threatening, Other)
  Sender: FDA-Public Use
  Company Number: 2024A137303

PATIENT
  Sex: Male
  Weight: 104 kg

DRUGS (1)
  1. CALQUENCE [Suspect]
     Active Substance: ACALABRUTINIB
     Indication: B-cell lymphoma
     Route: 048

REACTIONS (7)
  - Sciatica [Recovering/Resolving]
  - Cardiac arrest [Recovering/Resolving]
  - Nerve injury [Recovering/Resolving]
  - Herpes zoster [Recovering/Resolving]
  - Seizure [Recovering/Resolving]
  - Tendonitis [Recovering/Resolving]
  - Fall [Recovering/Resolving]
